FAERS Safety Report 12852243 (Version 1)
Quarter: 2016Q4

REPORT INFORMATION
  Report Type: Report from Study
  Country: US (occurrence: US)
  Receive Date: 20161017
  Receipt Date: 20161017
  Transmission Date: 20170207
  Serious: Yes (Hospitalization)
  Sender: FDA-Public Use
  Company Number: US-PFIZER INC-3204674

PATIENT
  Age: 42 Year
  Sex: Female
  Weight: 58 kg

DRUGS (8)
  1. IDARUBICIN HCL [Suspect]
     Active Substance: IDARUBICIN HYDROCHLORIDE
     Indication: ACUTE MYELOID LEUKAEMIA
     Dosage: 12 MG/M2, 1X/DAY  INTERVAL: 1
     Route: 042
     Dates: start: 20151106, end: 20151108
  2. ASP2215 [Suspect]
     Active Substance: GILTERITINIB
     Dosage: 40 MG, ONCE DAILY
     Route: 048
     Dates: start: 20160213
  3. LUPRON [Concomitant]
     Active Substance: LEUPROLIDE ACETATE
     Dosage: UNK
  4. HEPARIN [Concomitant]
     Active Substance: HEPARIN SODIUM
  5. CYTARABINE. [Suspect]
     Active Substance: CYTARABINE
     Indication: ACUTE MYELOID LEUKAEMIA
     Dosage: 100 MG/M2, 1X/DAY INTERVAL: 1
     Route: 042
     Dates: start: 20151106, end: 20151112
  6. CYTARABINE. [Suspect]
     Active Substance: CYTARABINE
     Dosage: 1.5 G/M2, FREQ: 1 DAY; INTERVAL: 1
     Route: 042
     Dates: start: 20151230, end: 20160103
  7. ANCEF [Concomitant]
     Active Substance: CEFAZOLIN SODIUM
  8. ASP2215 [Suspect]
     Active Substance: GILTERITINIB
     Indication: ACUTE MYELOID LEUKAEMIA
     Dosage: 40 MG, ONCE DAILY
     Route: 048
     Dates: start: 20151109, end: 20160210

REACTIONS (1)
  - Menorrhagia [Recovered/Resolved]

NARRATIVE: CASE EVENT DATE: 20160211
